FAERS Safety Report 8289130-4 (Version None)
Quarter: 2012Q2

REPORT INFORMATION
  Report Type: 
  Country: None (occurrence: None)
  Receive Date: 20120417
  Receipt Date: 20120411
  Transmission Date: 20120825
  Serious: Yes (Death, Hospitalization, Other)
  Sender: FDA-Public Use
  Company Number: GB-JNJFOC-20120405839

PATIENT

DRUGS (60)
  1. DOXORUBICIN HCL [Suspect]
     Route: 042
  2. RITUXIMAB [Suspect]
     Route: 065
  3. CYCLOPHOSPHAMIDE [Suspect]
     Indication: B-CELL LYMPHOMA
     Route: 065
  4. CYCLOPHOSPHAMIDE [Suspect]
     Route: 065
  5. VINCRISTINE [Suspect]
     Route: 065
  6. VINCRISTINE [Suspect]
     Route: 065
  7. VINCRISTINE [Suspect]
     Route: 065
  8. PREDNISOLONE [Suspect]
     Route: 065
  9. PREDNISOLONE [Suspect]
     Route: 065
  10. PREDNISOLONE [Suspect]
     Route: 065
  11. DOXORUBICIN HCL [Suspect]
     Route: 042
  12. RITUXIMAB [Suspect]
     Route: 065
  13. CYCLOPHOSPHAMIDE [Suspect]
     Route: 065
  14. CYCLOPHOSPHAMIDE [Suspect]
     Route: 065
  15. CYCLOPHOSPHAMIDE [Suspect]
     Route: 065
  16. VINCRISTINE [Suspect]
     Route: 065
  17. VINCRISTINE [Suspect]
     Route: 065
  18. PREDNISOLONE [Suspect]
     Route: 065
  19. PREDNISOLONE [Suspect]
     Route: 065
  20. PREDNISOLONE [Suspect]
     Indication: DIFFUSE LARGE B-CELL LYMPHOMA
     Route: 065
  21. PREDNISOLONE [Suspect]
     Route: 065
  22. DOXORUBICIN HCL [Suspect]
     Route: 042
  23. RITUXIMAB [Suspect]
     Route: 065
  24. RITUXIMAB [Suspect]
     Route: 065
  25. RITUXIMAB [Suspect]
     Route: 065
  26. RITUXIMAB [Suspect]
     Route: 065
  27. DOXORUBICIN HCL [Suspect]
     Route: 042
  28. DOXORUBICIN HCL [Suspect]
     Route: 042
  29. DOXORUBICIN HCL [Suspect]
     Route: 042
  30. RITUXIMAB [Suspect]
     Route: 065
  31. CYCLOPHOSPHAMIDE [Suspect]
     Route: 065
  32. VINCRISTINE [Suspect]
     Indication: B-CELL LYMPHOMA
     Route: 065
  33. VINCRISTINE [Suspect]
     Route: 065
  34. PREDNISOLONE [Suspect]
     Route: 065
  35. DOXORUBICIN HCL [Suspect]
     Route: 042
  36. RITUXIMAB [Suspect]
     Indication: DIFFUSE LARGE B-CELL LYMPHOMA
     Route: 065
  37. RITUXIMAB [Suspect]
     Route: 065
  38. CYCLOPHOSPHAMIDE [Suspect]
     Indication: DIFFUSE LARGE B-CELL LYMPHOMA
     Route: 065
  39. VINCRISTINE [Suspect]
     Route: 065
  40. PREDNISOLONE [Suspect]
     Indication: B-CELL LYMPHOMA
     Route: 065
  41. PREDNISOLONE [Suspect]
     Route: 065
  42. DOXORUBICIN HCL [Suspect]
     Route: 042
  43. DOXORUBICIN HCL [Suspect]
     Route: 042
  44. RITUXIMAB [Suspect]
     Indication: B-CELL LYMPHOMA
     Route: 065
  45. CYCLOPHOSPHAMIDE [Suspect]
     Route: 065
  46. CYCLOPHOSPHAMIDE [Suspect]
     Route: 065
  47. CYCLOPHOSPHAMIDE [Suspect]
     Route: 065
  48. CYCLOPHOSPHAMIDE [Suspect]
     Route: 065
  49. PREDNISOLONE [Suspect]
     Route: 065
  50. PREDNISOLONE [Suspect]
     Route: 065
  51. DOXORUBICIN HCL [Suspect]
     Indication: B-CELL LYMPHOMA
     Route: 042
  52. DOXORUBICIN HCL [Suspect]
     Indication: DIFFUSE LARGE B-CELL LYMPHOMA
     Route: 042
  53. RITUXIMAB [Suspect]
     Route: 065
  54. CYCLOPHOSPHAMIDE [Suspect]
     Route: 065
  55. VINCRISTINE [Suspect]
     Indication: DIFFUSE LARGE B-CELL LYMPHOMA
     Route: 065
  56. VINCRISTINE [Suspect]
     Route: 065
  57. DOXORUBICIN HCL [Suspect]
     Route: 042
  58. RITUXIMAB [Suspect]
     Route: 065
  59. VINCRISTINE [Suspect]
     Route: 065
  60. VINCRISTINE [Suspect]
     Route: 065

REACTIONS (5)
  - LYMPHOMA [None]
  - TREATMENT RELATED SECONDARY MALIGNANCY [None]
  - SEPSIS [None]
  - ONCOLOGIC COMPLICATION [None]
  - NEUTROPENIC SEPSIS [None]
